FAERS Safety Report 4765706-3 (Version None)
Quarter: 2005Q3

REPORT INFORMATION
  Report Type: 
  Country: None (occurrence: None)
  Receive Date: 20050906
  Receipt Date: 20050825
  Transmission Date: 20060218
  Serious: Yes (Hospitalization)
  Sender: FDA-Public Use
  Company Number: 2005120845

PATIENT
  Age: 64 Year
  Sex: Male

DRUGS (2)
  1. DILANTIN [Suspect]
     Indication: ILL-DEFINED DISORDER
     Dosage: 400 MG (100 MG, 4 IN 1 D), ORAL
     Route: 048
  2. CHEMOTHERAPY NOS (CHEMOTHERAPY NOS) [Concomitant]

REACTIONS (2)
  - ANTICONVULSANT DRUG LEVEL DECREASED [None]
  - SIMPLE PARTIAL SEIZURES [None]
